FAERS Safety Report 6689902-3 (Version None)
Quarter: 2010Q2

REPORT INFORMATION
  Report Type: 
  Country: None (occurrence: None)
  Receive Date: 20100421
  Receipt Date: 20100415
  Transmission Date: 20101027
  Serious: Yes (Death)
  Sender: FDA-Public Use
  Company Number: IT-BRACCO-000736

PATIENT
  Age: 81 Year
  Sex: Female

DRUGS (5)
  1. IOPAMIRO [Suspect]
     Indication: COMPUTERISED TOMOGRAM
     Dates: start: 20100414, end: 20100414
  2. IOPAMIRO [Suspect]
     Indication: CAROTID ARTERY STENOSIS
     Dates: start: 20100414, end: 20100414
  3. IOPAMIRO [Suspect]
     Indication: CEREBRAL ARTERY STENOSIS
     Dates: start: 20100414, end: 20100414
  4. IOPAMIRO [Suspect]
     Indication: CEREBRAL INFARCTION
     Dates: start: 20100414, end: 20100414
  5. CALCIPARINA [Concomitant]

REACTIONS (1)
  - ACUTE PULMONARY OEDEMA [None]
